FAERS Safety Report 23908866 (Version 1)
Quarter: 2024Q2

REPORT INFORMATION
  Report Type: Report from Study
  Country: US (occurrence: US)
  Receive Date: 20240528
  Receipt Date: 20240528
  Transmission Date: 20240716
  Serious: Yes (Hospitalization)
  Sender: FDA-Public Use
  Company Number: US-JNJFOC-20240555410

PATIENT
  Age: 46 Year
  Sex: Female

DRUGS (4)
  1. SPRAVATO [Suspect]
     Active Substance: ESKETAMINE
     Indication: Depression
     Dosage: 56 MG, TOTAL OF 1 DOSE
     Dates: start: 20230622, end: 20230622
  2. SPRAVATO [Suspect]
     Active Substance: ESKETAMINE
     Dosage: 84 MG, TOTAL OF 31 DOSES
     Dates: start: 20230626, end: 20231012
  3. SPRAVATO [Suspect]
     Active Substance: ESKETAMINE
     Dosage: 56 MG, TOTAL OF 1 DOSE
     Dates: start: 20231016, end: 20231016
  4. SPRAVATO [Suspect]
     Active Substance: ESKETAMINE
     Dosage: 84 MG, TOTAL OF 54 DOSES
     Dates: start: 20231019, end: 20240502

REACTIONS (3)
  - Multiple sclerosis relapse [Unknown]
  - Therapeutic response unexpected [Unknown]
  - Depression [Unknown]

NARRATIVE: CASE EVENT DATE: 20240101
